FAERS Safety Report 4309800-X (Version None)
Quarter: 2004Q1

REPORT INFORMATION
  Report Type: 
  Country: None (occurrence: None)
  Receive Date: 20040301
  Receipt Date: 20040220
  Transmission Date: 20041129
  Serious: Yes (Other)
  Sender: FDA-Public Use
  Company Number: NSADSS2002038953

PATIENT
  Age: 57 Year
  Sex: Male
  Weight: 117.9352 kg

DRUGS (8)
  1. REMICADE [Suspect]
     Indication: RHEUMATOID ARTHRITIS
     Dosage: SEE IMAGE
     Route: 041
     Dates: start: 20000808, end: 20000808
  2. REMICADE [Suspect]
     Indication: RHEUMATOID ARTHRITIS
     Dosage: SEE IMAGE
     Route: 041
     Dates: start: 20010122, end: 20010122
  3. REMICADE [Suspect]
     Indication: RHEUMATOID ARTHRITIS
     Dosage: SEE IMAGE
     Route: 041
     Dates: start: 20000505
  4. REMICADE [Suspect]
  5. IMURAN [Concomitant]
  6. ZOCOR [Concomitant]
  7. LORAZEPAM [Concomitant]
  8. MECLIZINE [Concomitant]

REACTIONS (3)
  - APPENDICITIS [None]
  - GASTROINTESTINAL INFECTION [None]
  - SINUS PAIN [None]
